FAERS Safety Report 6689133-7 (Version None)
Quarter: 2010Q2

REPORT INFORMATION
  Report Type: 
  Country: None (occurrence: None)
  Receive Date: 20100420
  Receipt Date: 20100413
  Transmission Date: 20101027
  Serious: Yes (Death, Other)
  Sender: FDA-Public Use
  Company Number: DE-BAXTER-2010BH009762

PATIENT

DRUGS (13)
  1. CYCLOPHOSPHAMIDE [Suspect]
     Indication: PERIPHERAL T-CELL LYMPHOMA UNSPECIFIED
     Route: 042
  2. ALEMTUZUMAB [Suspect]
     Indication: PERIPHERAL T-CELL LYMPHOMA UNSPECIFIED
     Route: 042
  3. ALEMTUZUMAB [Suspect]
     Route: 042
  4. ALEMTUZUMAB [Suspect]
     Route: 042
  5. FLUDARABINE [Suspect]
     Indication: PERIPHERAL T-CELL LYMPHOMA UNSPECIFIED
     Route: 042
  6. DOXORUBICIN HCL [Suspect]
     Indication: PERIPHERAL T-CELL LYMPHOMA UNSPECIFIED
     Route: 042
  7. CLEMASTINE FUMARATE [Concomitant]
     Indication: PREMEDICATION
     Route: 042
  8. ACETAMINOPHEN [Concomitant]
     Indication: PREMEDICATION
     Route: 048
  9. PREDNISONE TAB [Concomitant]
     Indication: PREMEDICATION
     Route: 042
  10. PREDNISONE TAB [Concomitant]
     Route: 042
  11. SEROTONIN ANTAGONISTS [Concomitant]
     Indication: PREMEDICATION
     Route: 065
  12. SULFAMETHOXAZOLE AND TRIMETHOPRIM [Concomitant]
     Indication: INFECTION PROPHYLAXIS
     Route: 065
  13. FAMCICLOVIR [Concomitant]
     Indication: INFECTION PROPHYLAXIS
     Route: 065

REACTIONS (2)
  - NEUTROPENIA [None]
  - SEPSIS [None]
